FAERS Safety Report 5609261-4 (Version None)
Quarter: 2008Q1

REPORT INFORMATION
  Report Type: 
  Country: None (occurrence: None)
  Receive Date: 20080131
  Receipt Date: 20080123
  Transmission Date: 20080703
  Serious: Yes (Hospitalization)
  Sender: FDA-Public Use
  Company Number: US-JNJFOC-20080106774

PATIENT
  Sex: Male
  Weight: 108.86 kg

DRUGS (3)
  1. DURAGESIC-100 [Suspect]
     Indication: ABDOMINAL PAIN
     Route: 062
  2. DURAGESIC-100 [Suspect]
     Indication: PROSTATIC PAIN
     Route: 062
  3. TYLENOL [Concomitant]
     Indication: PAIN
     Route: 048

REACTIONS (3)
  - EXPIRED DRUG ADMINISTERED [None]
  - GASTRIC CANCER [None]
  - PROSTATE CANCER [None]
